FAERS Safety Report 14655990 (Version 3)
Quarter: 2018Q2

REPORT INFORMATION
  Report Type: Spontaneous
  Country: IT (occurrence: IT)
  Receive Date: 20180319
  Receipt Date: 20180405
  Transmission Date: 20180711
  Serious: Yes (Hospitalization)
  Sender: FDA-Public Use
  Company Number: IT-JNJFOC-20180319764

PATIENT
  Age: 76 Year
  Sex: Male

DRUGS (7)
  1. EUTIROX [Concomitant]
     Active Substance: LEVOTHYROXINE SODIUM
     Route: 065
  2. RISPERDAL [Suspect]
     Active Substance: RISPERIDONE
     Indication: ACCIDENTAL EXPOSURE TO PRODUCT
     Route: 065
     Dates: start: 20180115, end: 20180115
  3. CARBOLITHIUM [Suspect]
     Active Substance: LITHIUM CARBONATE
     Indication: ACCIDENTAL EXPOSURE TO PRODUCT
     Route: 065
     Dates: start: 20180115, end: 20180115
  4. LANSOPRAZOLE. [Concomitant]
     Active Substance: LANSOPRAZOLE
     Route: 065
  5. ZESTRIL [Concomitant]
     Active Substance: LISINOPRIL
     Route: 065
  6. QUETIAPINE. [Suspect]
     Active Substance: QUETIAPINE
     Indication: ACCIDENTAL EXPOSURE TO PRODUCT
     Route: 048
     Dates: start: 20180115, end: 20180115
  7. ASCRIPTIN [Concomitant]
     Active Substance: ASPIRIN
     Route: 065

REACTIONS (5)
  - Language disorder [Unknown]
  - Hypokinesia [Unknown]
  - Bradyphrenia [Unknown]
  - Depressed level of consciousness [Unknown]
  - Accidental exposure to product [Unknown]

NARRATIVE: CASE EVENT DATE: 20180115
